FAERS Safety Report 9915157 (Version 4)
Quarter: 2016Q4

REPORT INFORMATION
  Report Type: Report from Study
  Country: BE (occurrence: BE)
  Receive Date: 20140220
  Receipt Date: 20161205
  Transmission Date: 20170207
  Serious: Yes (Death, Hospitalization, Other)
  Sender: FDA-Public Use
  Company Number: PHHY2014BE018473

PATIENT
  Age: 80 Year
  Sex: Male

DRUGS (8)
  1. 5 FLUORO URACIL [Suspect]
     Active Substance: FLUOROURACIL
     Dosage: 4281 MG, UNK
     Route: 041
  2. AMLOR [Concomitant]
     Active Substance: AMLODIPINE BESYLATE
     Indication: HYPERTENSION
     Dosage: 5 MG, UNK
     Route: 048
     Dates: start: 1949
  3. COZAAR [Concomitant]
     Active Substance: LOSARTAN POTASSIUM
     Indication: HYPERTENSION
     Dosage: 50 MG, UNK
     Route: 048
     Dates: start: 1949
  4. 5 FLUORO URACIL [Suspect]
     Active Substance: FLUOROURACIL
     Indication: GASTROOESOPHAGEAL CANCER
     Dosage: 713 MG, UNK
     Route: 040
     Dates: start: 20130926
  5. CARDIOASPIRINE [Concomitant]
     Active Substance: ASPIRIN
     Indication: HYPERTENSION
     Dosage: 100 MG, UNK
     Route: 048
     Dates: start: 1949
  6. OXALIPLATIN. [Suspect]
     Active Substance: OXALIPLATIN
     Indication: GASTROOESOPHAGEAL CANCER
     Dosage: 152 MG, UNK
     Route: 042
     Dates: start: 20130926
  7. FOLINIC ACID [Suspect]
     Active Substance: LEUCOVORIN
     Indication: GASTROOESOPHAGEAL CANCER
     Dosage: 357 MG, UNK
     Route: 042
     Dates: start: 20130926
  8. PLACEBO [Suspect]
     Active Substance: UNSPECIFIED INGREDIENT
     Indication: GASTROOESOPHAGEAL CANCER
     Dosage: 1 IN 2WEEKS
     Route: 042
     Dates: start: 20130926

REACTIONS (3)
  - Septic shock [Fatal]
  - Neutropenia [Unknown]
  - C-reactive protein increased [Unknown]

NARRATIVE: CASE EVENT DATE: 20131219
